FAERS Safety Report 9366585 (Version 1)
Quarter: 2013Q2

REPORT INFORMATION
  Report Type: Spontaneous
  Country: US (occurrence: US)
  Receive Date: 20130625
  Receipt Date: 20130625
  Transmission Date: 20140414
  Serious: No
  Sender: FDA-Public Use
  Company Number: US-B.I. PHARMACEUTICALS,INC./RIDGEFIELD-2013-BI-17291BP

PATIENT
  Age: 45 Year
  Sex: Female

DRUGS (3)
  1. FLOMAX CAPSULES [Suspect]
     Indication: NEPHROLITHIASIS
     Dosage: 0.4 MG
     Route: 048
     Dates: start: 20130608
  2. BACTRIM [Concomitant]
     Indication: PROPHYLAXIS URINARY TRACT INFECTION
     Route: 048
  3. ZOLOFT [Concomitant]
     Dosage: 100 MG
     Route: 048

REACTIONS (1)
  - Urinary retention [Not Recovered/Not Resolved]
